FAERS Safety Report 14214371 (Version 2)
Quarter: 2017Q4

REPORT INFORMATION
  Report Type: Spontaneous
  Country: US (occurrence: US)
  Receive Date: 20171122
  Receipt Date: 20171201
  Transmission Date: 20180321
  Serious: No
  Sender: FDA-Public Use
  Company Number: US-PFIZER INC-2017497266

PATIENT
  Age: 17 Year
  Sex: Male
  Weight: 40.82 kg

DRUGS (3)
  1. ZOLOFT [Suspect]
     Active Substance: SERTRALINE HYDROCHLORIDE
     Indication: ANXIETY
  2. PROGESTERONE. [Concomitant]
     Active Substance: PROGESTERONE
     Indication: HORMONE THERAPY
     Dosage: UNK
  3. ZOLOFT [Suspect]
     Active Substance: SERTRALINE HYDROCHLORIDE
     Indication: DEPRESSION
     Dosage: 25 MG, 1X/DAY
     Dates: start: 20171115

REACTIONS (4)
  - Drug ineffective [Unknown]
  - Heart rate increased [Unknown]
  - Drug administered to patient of inappropriate age [Unknown]
  - Tremor [Unknown]

NARRATIVE: CASE EVENT DATE: 20171115
